FAERS Safety Report 15590693 (Version 1)
Quarter: 2018Q4

REPORT INFORMATION
  Report Type: Spontaneous
  Country: US (occurrence: US)
  Receive Date: 20181106
  Receipt Date: 20181106
  Transmission Date: 20190205
  Serious: Yes (Other)
  Sender: FDA-Public Use
  Company Number: PHHY2018US140653

PATIENT
  Age: 11 Week
  Sex: Female

DRUGS (11)
  1. BLEOMYCIN [Concomitant]
     Active Substance: BLEOMYCIN SULFATE
     Indication: CONGENITAL TERATOMA
     Dosage: 15 U/M2, DAY 1
     Route: 042
  2. ETOPOSIDE. [Suspect]
     Active Substance: ETOPOSIDE
     Dosage: 100 MG/M2, QD (DAYS ?4 TO ?2)
     Route: 065
  3. CARBOPLATIN. [Suspect]
     Active Substance: CARBOPLATIN
     Indication: CONGENITAL TERATOMA
     Dosage: 600 MG/M2, QD (DAYS ?4 TO ?2)
     Route: 065
  4. ETOPOSIDE. [Suspect]
     Active Substance: ETOPOSIDE
     Indication: CONGENITAL TERATOMA
     Dosage: 100 MG/M2, QD (DAYS 1 TO 5)
     Route: 042
  5. IFOSFAMIDE. [Concomitant]
     Active Substance: IFOSFAMIDE
     Indication: CONGENITAL TERATOMA
     Dosage: 1500 MG/M2, QD (DAYS 2 TO 5)
     Route: 042
  6. CLOBAZAM. [Concomitant]
     Active Substance: CLOBAZAM
     Indication: INFANTILE SPASMS
     Route: 065
  7. VIGABATRIN. [Concomitant]
     Active Substance: VIGABATRIN
     Indication: INFANTILE SPASMS
     Route: 065
  8. CISPLATIN. [Concomitant]
     Active Substance: CISPLATIN
     Indication: CONGENITAL TERATOMA
     Dosage: 20 MG/M2, QD (DAYS 1 TO 5)
     Route: 042
  9. CISPLATIN. [Concomitant]
     Active Substance: CISPLATIN
     Dosage: 20 MG/M2, QD (DAYS 2 TO 5)
     Route: 042
  10. CANNABIDIOL [Concomitant]
     Active Substance: CANNABIDIOL
     Indication: INFANTILE SPASMS
     Route: 065
  11. PACLITAXEL. [Concomitant]
     Active Substance: PACLITAXEL
     Indication: CONGENITAL TERATOMA
     Dosage: 250 MG/M2, (DAY 1)
     Route: 042

REACTIONS (8)
  - Thrombocytopenia [Unknown]
  - Neutropenia [Unknown]
  - Anaemia [Unknown]
  - Pyrexia [Unknown]
  - Mucosal inflammation [Unknown]
  - Seizure [Unknown]
  - Deafness [Unknown]
  - Product use in unapproved indication [Unknown]
